FAERS Safety Report 7285346-4 (Version None)
Quarter: 2011Q1

REPORT INFORMATION
  Report Type: 
  Country: None (occurrence: None)
  Receive Date: 20110210
  Receipt Date: 20110128
  Transmission Date: 20110831
  Serious: Yes (Other)
  Sender: FDA-Public Use
  Company Number: US-ROCHE-756820

PATIENT
  Sex: Female

DRUGS (2)
  1. PEGASYS [Suspect]
     Route: 065
  2. ALCOHOL WIPE [Suspect]
     Dosage: NAME: TRIAD ALCOHOL PADS
     Route: 065

REACTIONS (4)
  - EPISTAXIS [None]
  - BEDRIDDEN [None]
  - ABDOMINAL DISTENSION [None]
  - VOMITING [None]
